FAERS Safety Report 7596838-2 (Version None)
Quarter: 2011Q3

REPORT INFORMATION
  Report Type: 
  Country: None (occurrence: None)
  Receive Date: 20110708
  Receipt Date: 20110627
  Transmission Date: 20111222
  Serious: Yes (Life-Threatening, Hospitalization, Disabling, Other)
  Sender: FDA-Public Use
  Company Number: BE-JNJFOC-20080405227

PATIENT
  Sex: Male
  Weight: 103 kg

DRUGS (10)
  1. INFLIXIMAB [Suspect]
     Route: 042
     Dates: start: 20080807
  2. COLITOFALK [Concomitant]
     Dates: start: 20040121
  3. INFLIXIMAB [Suspect]
     Route: 042
     Dates: start: 20081002
  4. INFLIXIMAB [Suspect]
     Route: 042
     Dates: start: 20080612
  5. INFLIXIMAB [Suspect]
     Route: 042
     Dates: start: 20090122
  6. IMURAN [Concomitant]
     Indication: CROHN'S DISEASE
  7. INFLIXIMAB [Suspect]
     Route: 042
     Dates: start: 20080417
  8. INFLIXIMAB [Suspect]
     Indication: CROHN'S DISEASE
     Route: 042
     Dates: start: 20080221
  9. INFLIXIMAB [Suspect]
     Route: 042
     Dates: start: 20071226
  10. INFLIXIMAB [Suspect]
     Route: 042
     Dates: start: 20081127

REACTIONS (6)
  - CYTOMEGALOVIRUS HEPATITIS [None]
  - HEPATIC STEATOSIS [None]
  - UNEVALUABLE EVENT [None]
  - LEUKOPENIA [None]
  - THROMBOCYTOPENIA [None]
  - BIOPSY LIVER [None]
